FAERS Safety Report 9588221 (Version 1)
Quarter: 2013Q4

REPORT INFORMATION
  Report Type: Spontaneous
  Country: US (occurrence: US)
  Receive Date: 20131003
  Receipt Date: 20131003
  Transmission Date: 20140711
  Serious: No
  Sender: FDA-Public Use
  Company Number: US-AMGEN-USASP2012063402

PATIENT
  Age: 62 Year
  Sex: Male

DRUGS (10)
  1. ENBREL [Suspect]
     Indication: PRODUCT USED FOR UNKNOWN INDICATION
     Dosage: 50 MG, QWK
     Route: 058
  2. ALLOPURINOL [Concomitant]
     Dosage: 300 MG, UNK
  3. ASPIRIN LOW [Concomitant]
     Dosage: 81 MG, EC
  4. CITALOPRAM [Concomitant]
     Dosage: 40 MG, UNK
  5. FOSAMAX [Concomitant]
     Dosage: 70 MG, UNK
  6. PROTONIX [Concomitant]
     Dosage: 40 MG, UNK
  7. PREDNISOLON                        /00016201/ [Concomitant]
     Dosage: UNK
  8. CITRACAL PLUS [Concomitant]
     Dosage: UNK
  9. ZOLPIDEM [Concomitant]
     Dosage: 5 MG, UNK
  10. OXYCODONE [Concomitant]
     Dosage: 5 MG, UNK

REACTIONS (1)
  - Iritis [Unknown]
